FAERS Safety Report 16873774 (Version 2)
Quarter: 2019Q4

REPORT INFORMATION
  Report Type: Spontaneous
  Country: US (occurrence: US)
  Receive Date: 20191001
  Receipt Date: 20191003
  Transmission Date: 20200122
  Serious: No
  Sender: FDA-Public Use
  Company Number: US-009507513-1910USA000022

PATIENT
  Sex: Female

DRUGS (1)
  1. NEXPLANON [Suspect]
     Active Substance: ETONOGESTREL
     Dosage: 1 ROD EVERY 3 YEARS
     Route: 059

REACTIONS (4)
  - Complication associated with device [Not Recovered/Not Resolved]
  - Device deployment issue [Not Recovered/Not Resolved]
  - Complication of device removal [Not Recovered/Not Resolved]
  - No adverse event [Unknown]
